FAERS Safety Report 9014074 (Version 2)
Quarter: 2013Q1

REPORT INFORMATION
  Report Type: Spontaneous
  Country: CL (occurrence: CL)
  Receive Date: 20130115
  Receipt Date: 20130120
  Transmission Date: 20140127
  Serious: Yes (Other)
  Sender: FDA-Public Use
  Company Number: CL-009507513-1301CHL004576

PATIENT
  Age: 24 Year
  Sex: Female

DRUGS (2)
  1. IMPLANON [Suspect]
     Indication: CONTRACEPTION
     Dosage: 25-70 MCG DAILY, FREQUENCY TRIENNIAL
     Route: 059
     Dates: start: 200808
  2. IMPLANON [Suspect]
     Dosage: 25-70 MCG DAILY, FREQUENCY TRIENNIAL
     Route: 059
     Dates: start: 20110603, end: 20120927

REACTIONS (3)
  - Abortion spontaneous [Recovered/Resolved]
  - Unintended pregnancy [Recovered/Resolved]
  - Medical device complication [Unknown]
